FAERS Safety Report 8429665-4 (Version None)
Quarter: 2012Q2

REPORT INFORMATION
  Report Type: 
  Country: None (occurrence: None)
  Receive Date: 20120612
  Receipt Date: 20120530
  Transmission Date: 20120825
  Serious: Yes (Other)
  Sender: FDA-Public Use
  Company Number: JP-PFIZER INC-2012041516

PATIENT
  Age: 47 Year
  Sex: Male
  Weight: 64.3 kg

DRUGS (9)
  1. CRESTOR [Concomitant]
     Indication: DYSLIPIDAEMIA
     Dosage: 2.5 MG, 1X/DAY
     Route: 048
     Dates: start: 20090520, end: 20090728
  2. OMEPRAZOLE [Concomitant]
     Indication: DYSPEPSIA
     Dosage: 20 MG, 1X/DAY
     Route: 048
     Dates: start: 20080305, end: 20080408
  3. CRESTOR [Concomitant]
     Dosage: 10 MG, 1X/DAY
     Dates: start: 20100331, end: 20111108
  4. CRESTOR [Concomitant]
     Dosage: 10 MG, 1X/DAY
     Dates: start: 20120215
  5. NORVASC [Suspect]
     Indication: HYPERTENSION
     Dosage: 5 MG, 1X/DAY
     Route: 048
     Dates: start: 20110922, end: 20111012
  6. CRESTOR [Concomitant]
     Dosage: 7.5 MG, 1X/DAY
     Dates: start: 20091202, end: 20100330
  7. DIFLUNISAL [Suspect]
     Indication: HYPERTENSION
     Dosage: 1 DF, 1X/DAY
     Route: 048
     Dates: start: 20110609, end: 20110921
  8. CRESTOR [Concomitant]
     Dosage: 5 MG, 1X/DAY
     Dates: start: 20090729, end: 20091201
  9. OMEPRAZOLE [Concomitant]
     Indication: GASTROOESOPHAGEAL REFLUX DISEASE
     Dosage: 10 MG, 1X/DAY
     Dates: start: 20080409

REACTIONS (1)
  - BLOOD CREATINE PHOSPHOKINASE INCREASED [None]
